FAERS Safety Report 4822166-1 (Version None)
Quarter: 2005Q4

REPORT INFORMATION
  Report Type: 
  Country: None (occurrence: None)
  Receive Date: 20051103
  Receipt Date: 20051013
  Transmission Date: 20060501
  Serious: Yes (Hospitalization)
  Sender: FDA-Public Use
  Company Number: USA0510109767

PATIENT
  Age: 78 Year
  Sex: Female

DRUGS (1)
  1. FORTEO [Suspect]
     Indication: SPINAL FRACTURE
     Dates: start: 20050916

REACTIONS (12)
  - ABDOMINAL PAIN LOWER [None]
  - ADNEXA UTERI PAIN [None]
  - BACK PAIN [None]
  - CONDITION AGGRAVATED [None]
  - HEADACHE [None]
  - INJECTION SITE ERYTHEMA [None]
  - KIDNEY INFECTION [None]
  - MIDDLE INSOMNIA [None]
  - NIGHT SWEATS [None]
  - PAIN IN EXTREMITY [None]
  - PHARMACEUTICAL PRODUCT COMPLAINT [None]
  - POLLAKIURIA [None]
